FAERS Safety Report 8581738-1 (Version None)
Quarter: 2012Q3

REPORT INFORMATION
  Report Type: 
  Country: None (occurrence: None)
  Receive Date: 20120809
  Receipt Date: 20120803
  Transmission Date: 20120928
  Serious: Yes (Death, Other)
  Sender: FDA-Public Use
  Company Number: CA-CELGENEUS-028-21880-11122570

PATIENT
  Sex: Male
  Weight: 84.5 kg

DRUGS (16)
  1. TYLENOL W/ CODEINE [Concomitant]
     Indication: ADVERSE EVENT
     Dosage: 300/30MG
     Route: 065
     Dates: start: 20100101
  2. TINZAPARIN [Concomitant]
     Route: 065
     Dates: start: 20111027
  3. CALCIUM [Concomitant]
     Route: 065
     Dates: start: 20090101
  4. REVLIMID [Suspect]
     Indication: MULTIPLE MYELOMA
     Dosage: 25 MILLIGRAM
     Route: 048
     Dates: start: 20111027
  5. BENADRYL [Concomitant]
     Route: 065
     Dates: start: 20111028
  6. COLACE [Concomitant]
     Indication: ADVERSE EVENT
     Route: 065
     Dates: start: 20111201
  7. EPREX [Concomitant]
     Indication: ADVERSE EVENT
     Route: 065
     Dates: start: 20111028
  8. ASPIRIN [Concomitant]
     Route: 065
     Dates: start: 20080101, end: 20111024
  9. ALLERTIN [Concomitant]
     Indication: ADVERSE EVENT
     Route: 065
     Dates: start: 20111028
  10. VITAMIN D [Concomitant]
     Route: 065
     Dates: start: 20090101
  11. DEXAMETHASONE [Suspect]
     Indication: MULTIPLE MYELOMA
     Dosage: 5.7143 MILLIGRAM
     Route: 048
     Dates: start: 20111027
  12. EPREX [Concomitant]
     Route: 065
     Dates: start: 20111103, end: 20111124
  13. CURAMIN [Concomitant]
     Route: 065
     Dates: start: 20090101
  14. VITAMIN B COMPLEX CAP [Concomitant]
     Route: 065
     Dates: start: 20090101
  15. ASCORBIC ACID [Concomitant]
     Route: 065
     Dates: start: 20090101
  16. CODEINE PHOSPHATE AND ACETAMINOPHEN [Concomitant]
     Route: 065
     Dates: start: 20100101

REACTIONS (2)
  - SINUSITIS [None]
  - DEATH [None]
